FAERS Safety Report 21788293 (Version 1)
Quarter: 2022Q4

REPORT INFORMATION
  Report Type: Spontaneous
  Country: CA (occurrence: CA)
  Receive Date: 20221228
  Receipt Date: 20221228
  Transmission Date: 20230112
  Serious: Yes (Other)
  Sender: FDA-Public Use
  Company Number: CA-MYLANLABS-2022M1143465

PATIENT
  Age: 14 Year
  Sex: Female

DRUGS (1)
  1. CLOBETASOL [Suspect]
     Active Substance: CLOBETASOL
     Indication: Eczema
     Dosage: TOPICAL 0.05% CLOBETASOL OINTMENT FOR NEAR ABOUT 3 MONTHS
     Route: 061

REACTIONS (1)
  - Drug ineffective [Unknown]
